FAERS Safety Report 23528886 (Version 1)
Quarter: 2024Q1

REPORT INFORMATION
  Report Type: Report from Study
  Country: CA (occurrence: CA)
  Receive Date: 20240215
  Receipt Date: 20240215
  Transmission Date: 20240410
  Serious: Yes (Other)
  Sender: FDA-Public Use
  Company Number: CA-JNJFOC-20240135151

PATIENT
  Age: 37 Year
  Sex: Female
  Weight: 108 kg

DRUGS (2)
  1. SIMPONI [Suspect]
     Active Substance: GOLIMUMAB
     Indication: Psoriatic arthropathy
     Route: 041
     Dates: start: 20231020
  2. SIMPONI [Suspect]
     Active Substance: GOLIMUMAB
     Route: 041
     Dates: start: 20231020

REACTIONS (5)
  - Psoriatic arthropathy [Unknown]
  - Palpitations [Unknown]
  - Blister infected [Unknown]
  - Respiratory tract infection [Not Recovered/Not Resolved]
  - Product dose omission issue [Unknown]
